FAERS Safety Report 10668168 (Version 2)
Quarter: 2014Q4

REPORT INFORMATION
  Report Type: Spontaneous
  Country: US (occurrence: US)
  Receive Date: 20141222
  Receipt Date: 20141222
  Transmission Date: 20150529
  Serious: No
  Sender: FDA-Public Use
  Company Number: US-GLAXOSMITHKLINE-A1051856A

PATIENT

DRUGS (2)
  1. NO CONCURRENT MEDICATION [Concomitant]
     Active Substance: UNSPECIFIED INGREDIENT
  2. AVODART [Suspect]
     Active Substance: DUTASTERIDE
     Indication: BENIGN PROSTATIC HYPERPLASIA
     Dosage: 1 CAPSULE DAILY
     Route: 048
     Dates: start: 20131129

REACTIONS (11)
  - Hyperhidrosis [Recovering/Resolving]
  - Pulse pressure abnormal [Recovering/Resolving]
  - Withdrawal syndrome [Recovering/Resolving]
  - Speech disorder [Recovering/Resolving]
  - Agitation [Recovering/Resolving]
  - Hyperventilation [Recovering/Resolving]
  - Middle insomnia [Recovering/Resolving]
  - Micturition disorder [Recovering/Resolving]
  - Discomfort [Recovering/Resolving]
  - Tremor [Recovering/Resolving]
  - Hypertonic bladder [Recovering/Resolving]

NARRATIVE: CASE EVENT DATE: 2013
